FAERS Safety Report 4386573-6 (Version None)
Quarter: 2004Q2

REPORT INFORMATION
  Report Type: 
  Country: None (occurrence: None)
  Receive Date: 20040623
  Receipt Date: 20040615
  Transmission Date: 20050107
  Serious: Yes (Death, Hospitalization)
  Sender: FDA-Public Use
  Company Number: FR-2004-027141

PATIENT
  Age: 58 Year
  Sex: Male
  Weight: 73 kg

DRUGS (5)
  1. FLUDARA [Suspect]
     Dosage: 25 MG /M2 INTRAVENOUS
     Route: 042
  2. CYCLOPHOSPHAMIDE [Suspect]
     Dosage: 250 MG /M2, INTRAVENOUS
     Route: 042
  3. RITUXIMAB (RITUXIMAB) [Suspect]
     Dosage: INTRAVENOUS
     Route: 042
  4. BACTRIM [Concomitant]
  5. LEDERFOLIN [Concomitant]

REACTIONS (3)
  - ANAEMIA [None]
  - MULTI-ORGAN FAILURE [None]
  - MYOCARDIAL INFARCTION [None]
